FAERS Safety Report 10311353 (Version 1)
Quarter: 2014Q3

REPORT INFORMATION
  Report Type: Spontaneous
  Country: US (occurrence: None)
  Receive Date: 20140716
  Receipt Date: 20140716
  Transmission Date: 20150326
  Serious: Yes (Life-Threatening, Hospitalization, Disabling)
  Sender: FDA-Public Use
  Company Number: None

PATIENT
  Age: 58 Year
  Sex: Male
  Weight: 84.37 kg

DRUGS (2)
  1. ACTONEL [Suspect]
     Active Substance: RISEDRONATE SODIUM
     Indication: BACK PAIN
     Dosage: 1  ONCE A MONTH TAKEN BY MOUTH
     Route: 048
     Dates: start: 20131130, end: 20140330
  2. ACTONEL [Suspect]
     Active Substance: RISEDRONATE SODIUM
     Indication: BONE DENSITY ABNORMAL
     Dosage: 1  ONCE A MONTH TAKEN BY MOUTH
     Route: 048
     Dates: start: 20131130, end: 20140330

REACTIONS (1)
  - Leukaemia [None]

NARRATIVE: CASE EVENT DATE: 20140416
